FAERS Safety Report 18385767 (Version 1)
Quarter: 2020Q4

REPORT INFORMATION
  Report Type: Spontaneous
  Country: GB (occurrence: GB)
  Receive Date: 20201015
  Receipt Date: 20201015
  Transmission Date: 20210114
  Serious: Yes (Disabling)
  Sender: FDA-Public Use
  Company Number: GB-TEVA-2020-GB-1838087

PATIENT
  Age: 78 Year
  Sex: Male

DRUGS (18)
  1. MONOMIL XL [Concomitant]
     Active Substance: ISOSORBIDE MONONITRATE
     Dosage: UNIT DOSE : 30 MG
     Route: 048
  2. RANOLAZINE. [Concomitant]
     Active Substance: RANOLAZINE
     Dosage: UNIT DOSE : 750 MG
     Route: 048
  3. BISOPROLOL [Concomitant]
     Active Substance: BISOPROLOL
     Dosage: 7.5 MILLIGRAM DAILY; AT NIGHT.
     Route: 048
  4. CO-AMOXICLAV [Concomitant]
     Active Substance: AMOXICILLIN\CLAVULANATE POTASSIUM
     Dosage: 1000MG/200MG, UNIT DOSE : 3.6 GRAM
     Route: 042
     Dates: start: 20200902, end: 20200904
  5. BUMETANIDE. [Concomitant]
     Active Substance: BUMETANIDE
     Dosage: 4MG EVERY MORNING AND 3MG MIDDAY. UNIT DOSE : 7 MG
     Route: 048
  6. AMIODARONE [Concomitant]
     Active Substance: AMIODARONE
     Dosage: UNIT DOSE  : 200 MG
     Route: 048
  7. ALLOPURINOL. [Concomitant]
     Active Substance: ALLOPURINOL
     Dosage: UNIT DOSE  : 200 MG
     Route: 048
  8. LEVOTHYROXINE SODIUM. [Concomitant]
     Active Substance: LEVOTHYROXINE SODIUM
     Dosage: UNIT DOSE  : 50 MICROGRAM
     Route: 048
     Dates: start: 20200902
  9. CIPROFLOXACIN. [Concomitant]
     Active Substance: CIPROFLOXACIN
     Dosage: UNIT DOSE : 1000 MG
     Route: 048
     Dates: start: 20200904
  10. DEXAMETHASONE. [Suspect]
     Active Substance: DEXAMETHASONE
     Indication: SUSPECTED COVID-19
     Dosage: UNIT DOSE  : 6 MG
     Route: 048
     Dates: start: 20200902, end: 20200907
  11. LOSARTAN. [Concomitant]
     Active Substance: LOSARTAN
     Dosage: 50 MILLIGRAM DAILY; EVERY NIGHT.
     Route: 048
  12. CLARITHROMYCIN. [Concomitant]
     Active Substance: CLARITHROMYCIN
     Dosage: UNIT DOSE  : 1000 MG
     Route: 042
     Dates: start: 20200902, end: 20200903
  13. BENDROFLUMETHIAZIDE [Concomitant]
     Active Substance: BENDROFLUMETHIAZIDE
     Dosage: UNIT DOSE  : 2.5 MG
     Route: 048
  14. DABIGATRAN ETEXILATE [Concomitant]
     Active Substance: DABIGATRAN ETEXILATE
     Dosage: UNIT DOSE : 300 MG
     Route: 048
     Dates: end: 20200909
  15. EPLERENONE. [Concomitant]
     Active Substance: EPLERENONE
     Dosage: 50 MILLIGRAM DAILY; EVERY MORNING.
     Route: 048
  16. OMEPRAZOLE. [Concomitant]
     Active Substance: OMEPRAZOLE
     Dosage: UNIT DOSE : 40 MG
     Route: 048
     Dates: start: 20200903
  17. ATORVASTATIN [Concomitant]
     Active Substance: ATORVASTATIN
     Dosage: 20 MILLIGRAM DAILY; AT NIGHT.
     Route: 048
  18. DOXYCYCLINE. [Concomitant]
     Active Substance: DOXYCYCLINE
     Dosage: UNIT DOSE : 200 MG
     Route: 048
     Dates: start: 20200903, end: 20200904

REACTIONS (3)
  - Agitation [Recovered/Resolved with Sequelae]
  - Hallucination [Recovered/Resolved with Sequelae]
  - Substance-induced psychotic disorder [Recovered/Resolved with Sequelae]

NARRATIVE: CASE EVENT DATE: 20200908
